FAERS Safety Report 9875401 (Version 2)
Quarter: 2014Q1

REPORT INFORMATION
  Report Type: Spontaneous
  Country: US (occurrence: US)
  Receive Date: 20140206
  Receipt Date: 20140206
  Transmission Date: 20141002
  Serious: No
  Sender: FDA-Public Use
  Company Number: US-ACORDA-ACO_36060_2013

PATIENT
  Age: 48 Year
  Sex: Female
  Weight: 48.98 kg

DRUGS (4)
  1. AMPYRA [Suspect]
     Indication: PRODUCT USED FOR UNKNOWN INDICATION
     Dosage: 10 MG, BID
     Route: 048
     Dates: start: 20120710, end: 20120810
  2. COPAXONE [Concomitant]
     Indication: MULTIPLE SCLEROSIS
     Dosage: UNK, QD
     Route: 058
     Dates: start: 201201
  3. CYMBALTA [Concomitant]
     Indication: DEPRESSION
     Dosage: 30 UNK, QD
     Route: 048
     Dates: start: 201203
  4. CRESTOR [Concomitant]
     Indication: HYPERLIPIDAEMIA
     Dosage: 10 UNK, QD
     Route: 048
     Dates: start: 201101

REACTIONS (3)
  - Drug intolerance [Recovered/Resolved]
  - Dizziness [Recovered/Resolved]
  - Paraesthesia [Recovered/Resolved]
